FAERS Safety Report 20138657 (Version 5)
Quarter: 2025Q4

REPORT INFORMATION
  Report Type: Spontaneous
  Country: EU (occurrence: EU)
  Receive Date: 20211202
  Receipt Date: 20251011
  Transmission Date: 20260118
  Serious: Yes (Life-Threatening, Hospitalization, Other)
  Sender: MACLEODS
  Company Number: None

PATIENT

DRUGS (14)
  1. LEVOFLOXACIN [Suspect]
     Active Substance: LEVOFLOXACIN
     Indication: Bacterial infection
     Dosage: ADMINISTERED FOR 7D; THEN RESTARTED AFTER HOSPITALISED WITH WORSENING FOOT INFECTION
     Route: 048
  2. LANSOPRAZOLE [Suspect]
     Active Substance: LANSOPRAZOLE
     Indication: Product used for unknown indication
     Route: 065
  3. ENALAPRIL [Suspect]
     Active Substance: ENALAPRIL
     Indication: Hypertension
     Dosage: 20 MILLIGRAM, QD, 12.5 MG/D
     Route: 048
  4. TRAMADOL [Suspect]
     Active Substance: TRAMADOL
     Indication: Pain
     Dosage: UNK, PRN (WHEN REQUIRED)
     Route: 048
  5. GLYBURIDE\METFORMIN [Suspect]
     Active Substance: GLYBURIDE\METFORMIN
     Indication: Type 2 diabetes mellitus
     Dosage: 400 MG, 3/DAY/400MG/2.5MG
     Route: 048
  6. NADROPARIN [Suspect]
     Active Substance: NADROPARIN
     Indication: Ischaemic stroke
     Dosage: 3800 INTERNATIONAL UNIT, QD
     Route: 058
  7. NADROPARIN [Suspect]
     Active Substance: NADROPARIN
     Indication: Ischaemic stroke
     Route: 048
  8. NADROPARIN [Suspect]
     Active Substance: NADROPARIN
     Indication: Anticoagulant therapy
  9. BUPRENORPHINE [Suspect]
     Active Substance: BUPRENORPHINE
     Indication: Pain
     Dosage: 35 MICROGRAM, PER HOUR
     Route: 062
  10. ENALAPRIL\HYDROCHLOROTHIAZIDE [Suspect]
     Active Substance: ENALAPRIL\HYDROCHLOROTHIAZIDE
     Indication: Hypertension
     Dosage: UNK ,QD (20 MG/12.5 MG), SWITCHED TO ENALAPRIL MONOTHERAPY
     Route: 048
  11. GLYBURIDE [Suspect]
     Active Substance: GLYBURIDE
     Indication: Type 2 diabetes mellitus
     Dosage: 2.5 MG, 3/DAY
     Route: 048
  12. INSULIN NOS [Concomitant]
     Active Substance: INSULIN NOS
     Indication: Product used for unknown indication
     Dosage: UNK
     Route: 065
  13. HEPARIN [Concomitant]
     Active Substance: HEPARIN SODIUM
     Indication: Middle cerebral artery stroke
     Dosage: DOSING DETAIL NOT PROVIDED
     Route: 065
  14. ASPIRIN [Concomitant]
     Active Substance: ASPIRIN
     Indication: Anticoagulant therapy
     Route: 048

REACTIONS (10)
  - Hypoglycaemic coma [Recovered/Resolved]
  - Blood glucose decreased [Recovered/Resolved]
  - Hypoglycaemia [Recovered/Resolved]
  - Skin warm [Recovered/Resolved]
  - Localised infection [Unknown]
  - Hyperhidrosis [Recovered/Resolved]
  - Peripheral artery thrombosis [Unknown]
  - Feeling hot [Recovered/Resolved]
  - Coma [Recovered/Resolved]
  - Drug interaction [Unknown]
